FAERS Safety Report 7009884-4 (Version None)
Quarter: 2010Q3

REPORT INFORMATION
  Report Type: 
  Country: None (occurrence: None)
  Receive Date: 20100923
  Receipt Date: 20100920
  Transmission Date: 20110219
  Serious: Yes (Hospitalization, Other)
  Sender: FDA-Public Use
  Company Number: JP-ROCHE-728306

PATIENT
  Age: 54 Year
  Sex: Female

DRUGS (3)
  1. PEGINTERFERON ALFA-2A [Suspect]
     Route: 058
     Dates: start: 20080722
  2. RIBAVIRIN [Suspect]
     Route: 065
     Dates: start: 20070814
  3. PEGINTERFERON ALFA-2B [Suspect]
     Route: 065
     Dates: start: 20070814

REACTIONS (3)
  - HELICOBACTER INFECTION [None]
  - MUCOSAL ATROPHY [None]
  - THROMBOCYTOPENIA [None]
